FAERS Safety Report 7710232-2 (Version None)
Quarter: 2011Q3

REPORT INFORMATION
  Report Type: 
  Country: None (occurrence: None)
  Receive Date: 20110825
  Receipt Date: 20110712
  Transmission Date: 20111222
  Serious: Yes (Hospitalization)
  Sender: FDA-Public Use
  Company Number: FR-PFIZER INC-2011130839

PATIENT
  Age: 61 Year
  Sex: Female
  Weight: 62 kg

DRUGS (6)
  1. PEGVISOMANT [Suspect]
     Dosage: 20 MG, 1X/DAY
  2. GLUCOPHAGE [Concomitant]
     Indication: TYPE 2 DIABETES MELLITUS
     Dosage: UNK
     Route: 048
     Dates: start: 20091204
  3. PEGVISOMANT [Suspect]
     Indication: ACROMEGALY
     Dosage: 30 MG, 1X/DAY
     Dates: start: 20030701
  4. UN-ALFA [Concomitant]
     Indication: HYPOCALCAEMIA
     Dosage: UNK
     Dates: start: 20091204, end: 20100101
  5. FOSAMAX [Concomitant]
     Indication: OSTEOPOROSIS
     Dosage: UNK
     Dates: start: 20081007, end: 20100101
  6. FENOFIBRATE [Concomitant]
     Indication: LIPIDS ABNORMAL
     Dosage: UNK
     Dates: start: 20081007, end: 20100101

REACTIONS (1)
  - SPINAL COMPRESSION FRACTURE [None]
